FAERS Safety Report 8860559 (Version 1)
Quarter: 2012Q4

REPORT INFORMATION
  Report Type: 
  Country: US (occurrence: US)
  Receive Date: 20121025
  Receipt Date: 20121025
  Transmission Date: 20130627
  Serious: No
  Sender: FDA-Public Use
  Company Number: US-PFIZER INC-2012263599

PATIENT
  Sex: Female

DRUGS (4)
  1. ESTRADIOL [Suspect]
     Indication: ATROPHIC VULVOVAGINITIS
     Dosage: 1 mg, daily
  2. EXFORGE [Concomitant]
     Indication: HYPERTENSION
     Dosage: 5/160 mg, daily
  3. METFORMIN [Concomitant]
     Indication: DIABETES MELLITUS
     Dosage: 1000 mg, 2x/day
  4. GLIMEPIRIDE [Concomitant]
     Indication: DIABETES MELLITUS
     Dosage: 2 mg, daily

REACTIONS (1)
  - Cystitis-like symptom [Recovered/Resolved]
